FAERS Safety Report 24760721 (Version 1)
Quarter: 2024Q4

REPORT INFORMATION
  Report Type: Spontaneous
  Country: JP (occurrence: JP)
  Receive Date: 20241220
  Receipt Date: 20241220
  Transmission Date: 20250115
  Serious: Yes (Other)
  Sender: PFIZER
  Company Number: JP-PFIZER INC-202400328241

PATIENT
  Age: 4 Month
  Sex: Female

DRUGS (1)
  1. SIROLIMUS [Suspect]
     Active Substance: SIROLIMUS
     Dosage: UNK

REACTIONS (3)
  - Citrobacter bacteraemia [Unknown]
  - Wound dehiscence [Unknown]
  - Faeces soft [Unknown]

NARRATIVE: CASE EVENT DATE: 20240101
